FAERS Safety Report 7541552-2 (Version None)
Quarter: 2011Q2

REPORT INFORMATION
  Report Type: 
  Country: None (occurrence: None)
  Receive Date: 20110613
  Receipt Date: 20110607
  Transmission Date: 20111010
  Serious: No
  Sender: FDA-Public Use
  Company Number: US-PFIZER INC-2011110528

PATIENT
  Sex: Female
  Weight: 76.19 kg

DRUGS (4)
  1. ANTIVERT [Suspect]
     Indication: MALLORY-WEISS SYNDROME
     Dosage: 25 MG, 3X/DAY
     Route: 048
     Dates: start: 19780101, end: 20100101
  2. MECLIZINE [Suspect]
     Indication: MALLORY-WEISS SYNDROME
     Dosage: 25 MG, 3X/DAY
     Route: 048
     Dates: start: 20110501
  3. ANTIVERT [Suspect]
     Dosage: SPLITTING THE 50 MG TABLETS
     Route: 048
     Dates: start: 20100101, end: 20110501
  4. VALIUM [Concomitant]
     Indication: MALLORY-WEISS SYNDROME
     Dosage: 5 MG, 3X/DAY
     Route: 048

REACTIONS (1)
  - ABDOMINAL DISCOMFORT [None]
